FAERS Safety Report 21093603 (Version 1)
Quarter: 2022Q3

REPORT INFORMATION
  Report Type: Spontaneous
  Country: US (occurrence: None)
  Receive Date: 20220715
  Receipt Date: 20220715
  Transmission Date: 20221026
  Serious: Yes (Disabling)
  Sender: FDA-Public Use
  Company Number: None

PATIENT
  Age: 74 Year
  Sex: Female
  Weight: 69.75 kg

DRUGS (7)
  1. PAXLOVID [Suspect]
     Active Substance: NIRMATRELVIR\RITONAVIR
     Indication: COVID-19
     Dates: start: 20220711
  2. FAMOTIDINE [Concomitant]
     Active Substance: FAMOTIDINE
  3. EZETIMIBE [Concomitant]
     Active Substance: EZETIMIBE
  4. FEXOFENADINE [Concomitant]
     Active Substance: FEXOFENADINE HYDROCHLORIDE
  5. ACETAMINOPHEN [Concomitant]
     Active Substance: ACETAMINOPHEN
  6. diabetic cough syrup [Concomitant]
  7. eucalyptus tea [Concomitant]

REACTIONS (3)
  - Constipation [None]
  - Urine output increased [None]
  - Dizziness [None]

NARRATIVE: CASE EVENT DATE: 20220711
